FAERS Safety Report 9897521 (Version 2)
Quarter: 2014Q2

REPORT INFORMATION
  Report Type: Spontaneous
  Country: US (occurrence: US)
  Receive Date: 20140214
  Receipt Date: 20140527
  Transmission Date: 20141212
  Serious: No
  Sender: FDA-Public Use
  Company Number: US-009507513-1402USA007073

PATIENT
  Age: 75 Year
  Sex: Female
  Weight: 72.56 kg

DRUGS (4)
  1. OXYTROL FOR WOMEN [Suspect]
     Indication: POLLAKIURIA
     Dosage: UNK, UNKNOWN
     Route: 062
     Dates: start: 20131203, end: 201402
  2. OXYBUTYNIN [Concomitant]
     Indication: PRODUCT USED FOR UNKNOWN INDICATION
     Dosage: UNK, UNKNOWN
  3. SYNTHROID [Concomitant]
     Indication: THYROID DISORDER
     Dosage: 10 MG, UNKNOWN
  4. JANUVIA [Concomitant]
     Indication: DIARRHOEA
     Dosage: 50 MG, UNKNOWN

REACTIONS (6)
  - Dizziness [Recovered/Resolved]
  - Application site vesicles [Unknown]
  - Application site pruritus [Unknown]
  - Application site rash [Recovered/Resolved]
  - Overdose [Unknown]
  - Off label use [Unknown]
